FAERS Safety Report 4353789-4 (Version None)
Quarter: 2004Q2

REPORT INFORMATION
  Report Type: 
  Country: None (occurrence: None)
  Receive Date: 20040429
  Receipt Date: 20030501
  Transmission Date: 20050107
  Serious: Yes (Other)
  Sender: FDA-Public Use
  Company Number: 1672713A

PATIENT
  Sex: Female

DRUGS (2)
  1. IMODIUM A-D [Suspect]
     Dosage: PO
     Route: 048
  2. PEPTO-BISMOL LIQUID PRODUCT [Suspect]
     Dosage: PO
     Route: 048

REACTIONS (1)
  - ABNORMAL FAECES [None]
